FAERS Safety Report 12727086 (Version 1)
Quarter: 2016Q3

REPORT INFORMATION
  Report Type: Spontaneous
  Country: IT (occurrence: IT)
  Receive Date: 20160909
  Receipt Date: 20160909
  Transmission Date: 20161109
  Serious: Yes (Other)
  Sender: FDA-Public Use
  Company Number: IT-ROCHE-1827851

PATIENT
  Age: 62 Year
  Sex: Female

DRUGS (1)
  1. KADCYLA [Suspect]
     Active Substance: ADO-TRASTUZUMAB EMTANSINE
     Indication: BREAST CANCER
     Dosage: 160 MG VIAL (GLASS) - 1 VIAL
     Route: 042
     Dates: start: 20160620

REACTIONS (1)
  - Myelopathy [Unknown]

NARRATIVE: CASE EVENT DATE: 20160805
